FAERS Safety Report 4545919-6 (Version None)
Quarter: 2005Q1

REPORT INFORMATION
  Report Type: 
  Country: None (occurrence: None)
  Receive Date: 20050106
  Receipt Date: 20041228
  Transmission Date: 20050727
  Serious: Yes (Life-Threatening, Hospitalization)
  Sender: FDA-Public Use
  Company Number: 200510000EU

PATIENT
  Age: 38 Year
  Sex: Male

DRUGS (2)
  1. ARAVA [Suspect]
     Indication: PSORIASIS
     Route: 048
     Dates: start: 20040312, end: 20041107
  2. ARTHROTEC [Suspect]
     Indication: PSORIASIS
     Route: 048
     Dates: start: 20040522, end: 20041107

REACTIONS (3)
  - SYNCOPE [None]
  - VASOSPASM [None]
  - VENTRICULAR TACHYCARDIA [None]
